FAERS Safety Report 24602754 (Version 1)
Quarter: 2024Q4

REPORT INFORMATION
  Report Type: Spontaneous
  Country: US (occurrence: None)
  Receive Date: 20241108
  Receipt Date: 20241108
  Transmission Date: 20250114
  Serious: Yes (Hospitalization)
  Sender: Public
  Company Number: None

PATIENT
  Age: 49 Year
  Sex: Male
  Weight: 120.4 kg

DRUGS (6)
  1. OXALIPLATIN [Suspect]
     Active Substance: OXALIPLATIN
     Indication: Adenocarcinoma pancreas
     Dosage: 50 MG EVERY 2 WEEKS INTRAVENOUS DRIP
     Route: 041
     Dates: start: 20240813, end: 20241024
  2. OXALIPLATIN [Suspect]
     Active Substance: OXALIPLATIN
     Indication: Adenocarcinoma pancreas
     Dosage: 100 MG EVERY 2 WEEKS INTRAVENOUS DRIP?
     Route: 041
     Dates: start: 20240813, end: 20241024
  3. DEXAMETHASONE [Concomitant]
  4. Palonsetron [Concomitant]
  5. FOSAPREPITANT [Concomitant]
  6. ATROPINE [Concomitant]

REACTIONS (4)
  - Pulmonary embolism [None]
  - Headache [None]
  - Neuropathy peripheral [None]
  - Tremor [None]

NARRATIVE: CASE EVENT DATE: 20241024
